FAERS Safety Report 14411286 (Version 4)
Quarter: 2018Q2

REPORT INFORMATION
  Report Type: Report from Study
  Country: BE (occurrence: BE)
  Receive Date: 20180119
  Receipt Date: 20180510
  Transmission Date: 20180711
  Serious: Yes (Other)
  Sender: FDA-Public Use
  Company Number: BE-SA-2017SA259002

PATIENT
  Age: 36 Year
  Sex: Female

DRUGS (1)
  1. LEMTRADA [Suspect]
     Active Substance: ALEMTUZUMAB
     Indication: MULTIPLE SCLEROSIS
     Route: 041
     Dates: end: 20171113

REACTIONS (13)
  - Pain in extremity [Unknown]
  - Constipation [Recovering/Resolving]
  - Weight increased [Recovering/Resolving]
  - Pain [Unknown]
  - Chromaturia [Unknown]
  - Gastrointestinal motility disorder [Unknown]
  - Wound [Unknown]
  - Menstrual disorder [Unknown]
  - Headache [Recovering/Resolving]
  - Haemorrhagic diathesis [Unknown]
  - Rash erythematous [Recovered/Resolved]
  - Menorrhagia [Recovering/Resolving]
  - Contusion [Recovering/Resolving]

NARRATIVE: CASE EVENT DATE: 201712
